FAERS Safety Report 10243059 (Version 1)
Quarter: 2014Q2

REPORT INFORMATION
  Report Type: Spontaneous
  Country: NO (occurrence: None)
  Receive Date: 20140613
  Receipt Date: 20140613
  Transmission Date: 20141212
  Serious: Yes (Other)
  Sender: FDA-Public Use
  Company Number: FK201402297

PATIENT
  Age: 43 Year
  Sex: Female

DRUGS (11)
  1. CYTARABINE (CYTARABINE) [Suspect]
     Indication: PRECURSOR B-LYMPHOBLASTIC LYMPHOMA
     Route: 042
  2. DOXORUBICIN (DOXORUBICIN) [Suspect]
     Indication: PRECURSOR B-LYMPHOBLASTIC LYMPHOMA
     Route: 042
  3. PREDNISONE (PREDNISONE) [Suspect]
     Indication: PRECURSOR B-LYMPHOBLASTIC LYMPHOMA
     Route: 037
  4. CYCLOPHOSPHAMIDE (CYCLOPHOSPHAMIDE) [Suspect]
     Indication: PRECURSOR B-LYMPHOBLASTIC LYMPHOMA
     Route: 042
  5. VINCRISTINE SULFATE (VINCRISTINE SULFATE) [Suspect]
     Indication: PRECURSOR B-LYMPHOBLASTIC LYMPHOMA
     Route: 042
  6. THIOGUANINE [Suspect]
     Indication: PRECURSOR B-LYMPHOBLASTIC LYMPHOMA
     Route: 042
  7. METHOTREXATE (METHOTREXATE) [Suspect]
     Indication: PRECURSOR B-LYMPHOBLASTIC LYMPHOMA
     Route: 037
  8. G-CSF (GRANULOCYTE COLONY STIMULATING FACTOR) [Suspect]
     Indication: PERIPHERAL BLOOD STEM CELL APHERESIS
  9. DAUNORUBICIN (DAUNORUBICIN) [Suspect]
     Indication: PRECURSOR B-LYMPHOBLASTIC LYMPHOMA
     Route: 042
  10. L-ASPARAGINASE (ASPARAGINASE) (UNKNOWN) (ASPARAGINASE) [Suspect]
     Indication: PRECURSOR B-LYMPHOBLASTIC LYMPHOMA
     Route: 042
  11. MERCAPTOPURINE (MERCAPTOPURINE) (MERCAPTOPURINE) [Suspect]
     Indication: PRECURSOR B-LYMPHOBLASTIC LYMPHOMA
     Route: 048

REACTIONS (2)
  - Febrile neutropenia [None]
  - Haematotoxicity [None]
